FAERS Safety Report 15009030 (Version 8)
Quarter: 2020Q2

REPORT INFORMATION
  Report Type: Report from Study
  Country: CA (occurrence: CA)
  Receive Date: 20180614
  Receipt Date: 20200424
  Transmission Date: 20200713
  Serious: Yes (Other)
  Sender: FDA-Public Use
  Company Number: CA-ROCHE-2138946

PATIENT
  Age: 16 Year
  Sex: Female

DRUGS (22)
  1. ACTEMRA [Suspect]
     Active Substance: TOCILIZUMAB
     Dosage: INFUSION #18
     Route: 042
     Dates: start: 20180411
  2. ACTEMRA [Suspect]
     Active Substance: TOCILIZUMAB
     Route: 042
     Dates: start: 20190313, end: 20190313
  3. ACTEMRA [Suspect]
     Active Substance: TOCILIZUMAB
     Route: 042
     Dates: start: 20200205
  4. ACTEMRA [Suspect]
     Active Substance: TOCILIZUMAB
     Route: 042
     Dates: start: 20190423, end: 20190423
  5. ACTEMRA [Suspect]
     Active Substance: TOCILIZUMAB
     Route: 042
     Dates: start: 20170428
  6. ACTEMRA [Suspect]
     Active Substance: TOCILIZUMAB
     Dosage: FIRST THREE INFUSION COMPLETED IN HOSPITAL. DOSAGE NOTED PER ENROLMENT PRESCRIPTION;?UNCONFIRMED AS
     Route: 042
     Dates: start: 20170317, end: 20170815
  7. ACTEMRA [Suspect]
     Active Substance: TOCILIZUMAB
     Route: 042
     Dates: start: 20190413, end: 20190413
  8. ACTEMRA [Suspect]
     Active Substance: TOCILIZUMAB
     Route: 042
     Dates: start: 20190709, end: 20190709
  9. ACTEMRA [Suspect]
     Active Substance: TOCILIZUMAB
     Route: 042
     Dates: start: 20191217, end: 20191217
  10. ACTEMRA [Suspect]
     Active Substance: TOCILIZUMAB
     Route: 042
     Dates: start: 20180505
  11. ACTEMRA [Suspect]
     Active Substance: TOCILIZUMAB
     Route: 042
     Dates: start: 20190523, end: 20190523
  12. ACTEMRA [Suspect]
     Active Substance: TOCILIZUMAB
     Route: 042
     Dates: start: 20190820, end: 20190820
  13. PREDNISONE. [Concomitant]
     Active Substance: PREDNISONE
     Indication: PRODUCT USED FOR UNKNOWN INDICATION
  14. ACTEMRA [Suspect]
     Active Substance: TOCILIZUMAB
     Dosage: DOSAGE UNCONFIRMED AS NO PIRS RECEIVED DURING THIS TIMEFRAME. DOSAGE NOTED?ACCORDING TO ENROLMENT PR
     Route: 042
     Dates: start: 20170831, end: 20171219
  15. ACTEMRA [Suspect]
     Active Substance: TOCILIZUMAB
     Route: 042
     Dates: start: 20181017, end: 20181017
  16. ACTEMRA [Suspect]
     Active Substance: TOCILIZUMAB
     Route: 042
     Dates: start: 20181114, end: 20190109
  17. ACTEMRA [Suspect]
     Active Substance: TOCILIZUMAB
     Route: 042
     Dates: start: 20190213, end: 20190213
  18. PANTOLOC [PANTOPRAZOLE] [Concomitant]
     Active Substance: PANTOPRAZOLE SODIUM
     Indication: PRODUCT USED FOR UNKNOWN INDICATION
  19. ACTEMRA [Suspect]
     Active Substance: TOCILIZUMAB
     Route: 042
     Dates: start: 20191001, end: 20191001
  20. ACTEMRA [Suspect]
     Active Substance: TOCILIZUMAB
     Indication: JUVENILE IDIOPATHIC ARTHRITIS
     Dosage: INITIAL DOSING DETAILS NOT PROVIDED
     Route: 042
     Dates: start: 20170428
  21. ACTEMRA [Suspect]
     Active Substance: TOCILIZUMAB
     Route: 042
     Dates: start: 20180703, end: 20180919
  22. ACTEMRA [Suspect]
     Active Substance: TOCILIZUMAB
     Dosage: 8MG/KG - DOSAGE ACCORDING TO WEIGHT. UNCONFIRMED AS NO PIRS RECEIVED.
     Route: 042
     Dates: start: 20180117, end: 20180605

REACTIONS (10)
  - Loss of consciousness [Unknown]
  - Nausea [Unknown]
  - Headache [Unknown]
  - Product prescribing error [Unknown]
  - Neck pain [Not Recovered/Not Resolved]
  - Off label use [Unknown]
  - Cough [Unknown]
  - Headache [Not Recovered/Not Resolved]
  - Pain [Not Recovered/Not Resolved]
  - Nasal congestion [Unknown]

NARRATIVE: CASE EVENT DATE: 20180506
